FAERS Safety Report 11275840 (Version 1)
Quarter: 2015Q3

REPORT INFORMATION
  Report Type: Spontaneous
  Country: US (occurrence: US)
  Receive Date: 20150716
  Receipt Date: 20150716
  Transmission Date: 20151125
  Serious: Yes (Other)
  Sender: FDA-Public Use
  Company Number: US-PROCTER_AND_GAMBLE-CIO15042783

PATIENT
  Age: 75 Year
  Sex: Male

DRUGS (1)
  1. OXYMETAZOLINE NASAL PREPARATION [Suspect]
     Active Substance: OXYMETAZOLINE
     Dosage: SEVERAL DAYS
     Route: 045

REACTIONS (10)
  - Subarachnoid haemorrhage [Recovered/Resolved]
  - Granulomatosis with polyangiitis [Recovered/Resolved]
  - Nuclear magnetic resonance imaging abnormal [Recovered/Resolved]
  - Cerebral haemorrhage [Recovered/Resolved]
  - Vasculitis [Recovered/Resolved]
  - Headache [Recovered/Resolved]
  - Hypoaesthesia [Recovered/Resolved]
  - Meningeal disorder [Recovered/Resolved]
  - CSF lymphocyte count abnormal [Recovered/Resolved]
  - Cerebral infarction [Recovered/Resolved]
